FAERS Safety Report 21927356 (Version 3)
Quarter: 2023Q1

REPORT INFORMATION
  Report Type: Report from Study
  Country: CA (occurrence: CA)
  Receive Date: 20230130
  Receipt Date: 20230308
  Transmission Date: 20230417
  Serious: Yes (Hospitalization, Other)
  Sender: FDA-Public Use
  Company Number: CA-BoehringerIngelheim-2023-BI-212709

PATIENT
  Age: 81 Year
  Sex: Male

DRUGS (3)
  1. OFEV [Suspect]
     Active Substance: NINTEDANIB
     Indication: Idiopathic pulmonary fibrosis
     Route: 048
  2. OFEV [Suspect]
     Active Substance: NINTEDANIB
     Route: 048
  3. OFEV [Suspect]
     Active Substance: NINTEDANIB
     Route: 048
     Dates: start: 20221027

REACTIONS (5)
  - Ulcer haemorrhage [Recovering/Resolving]
  - Lung carcinoma cell type unspecified stage I [Not Recovered/Not Resolved]
  - Drug intolerance [Unknown]
  - Haemorrhage [Unknown]
  - Blood glucose increased [Not Recovered/Not Resolved]
